FAERS Safety Report 16031451 (Version 2)
Quarter: 2019Q1

REPORT INFORMATION
  Report Type: Spontaneous
  Country: US (occurrence: US)
  Receive Date: 20190304
  Receipt Date: 20190309
  Transmission Date: 20190418
  Serious: No
  Sender: FDA-Public Use
  Company Number: US-JNJFOC-20190228736

PATIENT
  Age: 25 Year
  Sex: Male
  Weight: 101.61 kg

DRUGS (1)
  1. TREMFYA [Suspect]
     Active Substance: GUSELKUMAB
     Indication: PSORIASIS
     Route: 058
     Dates: start: 201802

REACTIONS (3)
  - Syringe issue [Unknown]
  - Underdose [Unknown]
  - Anxiety [Unknown]

NARRATIVE: CASE EVENT DATE: 20190218
